FAERS Safety Report 24275304 (Version 1)
Quarter: 2024Q3

REPORT INFORMATION
  Report Type: Spontaneous
  Country: TW (occurrence: TW)
  Receive Date: 20240903
  Receipt Date: 20240903
  Transmission Date: 20241017
  Serious: Yes (Life-Threatening)
  Sender: SANDOZ
  Company Number: TW-SANDOZ-SDZ2024TW076462

PATIENT
  Sex: Male
  Weight: 125 kg

DRUGS (5)
  1. CEFTRIAXONE [Suspect]
     Active Substance: CEFTRIAXONE\CEFTRIAXONE SODIUM
     Indication: Infection
     Dosage: 1193.3 MG,2 GM PER IMMEDIATE USE
     Route: 041
  2. CEFTRIAXONE [Suspect]
     Active Substance: CEFTRIAXONE\CEFTRIAXONE SODIUM
     Dosage: 1193.3 MG,2 GM PER IMMEDIATE USE
     Route: 041
  3. CEFTRIAXONE [Suspect]
     Active Substance: CEFTRIAXONE\CEFTRIAXONE SODIUM
     Dosage: 1193.3 MG,2 GM PER IMMEDIATE USE
     Route: 041
  4. CEFTRIAXONE [Suspect]
     Active Substance: CEFTRIAXONE\CEFTRIAXONE SODIUM
     Dosage: 1193.3 MG,2 GM PER IMMEDIATE USE
     Route: 041
  5. CEFTRIAXONE [Suspect]
     Active Substance: CEFTRIAXONE\CEFTRIAXONE SODIUM
     Dosage: 1193.3 MG,2 GM PER IMMEDIATE USE
     Route: 041

REACTIONS (3)
  - Bronchospasm [Recovered/Resolved]
  - Dyspnoea [Recovered/Resolved]
  - Rash [Recovered/Resolved]
